FAERS Safety Report 5254833-2 (Version None)
Quarter: 2007Q1

REPORT INFORMATION
  Report Type: 
  Country: None (occurrence: None)
  Receive Date: 20070305
  Receipt Date: 20070227
  Transmission Date: 20070707
  Serious: No
  Sender: FDA-Public Use
  Company Number: VE-ELI_LILLY_AND_COMPANY-VE200702000653

PATIENT
  Age: 18 Year
  Sex: Male

DRUGS (4)
  1. ZYPREXA [Suspect]
     Indication: SCHIZOPHRENIA
     Dosage: 5 MG, UNK
     Route: 048
     Dates: start: 20060701, end: 20070101
  2. ZYPREXA [Suspect]
     Dosage: 20 MG, DAILY (1/D)
     Route: 048
  3. TRILEPTAL [Concomitant]
     Dosage: 1200 MG, DAILY (1/D)
  4. RIVOTRIL [Concomitant]
     Dosage: 2 MG, EACH EVENING

REACTIONS (1)
  - THROMBOCYTOPENIA [None]
